FAERS Safety Report 8537946-9 (Version None)
Quarter: 2012Q3

REPORT INFORMATION
  Report Type: 
  Country: None (occurrence: None)
  Receive Date: 20120725
  Receipt Date: 20120112
  Transmission Date: 20120928
  Serious: Yes (Death, Hospitalization, Other)
  Sender: FDA-Public Use
  Company Number: US-ROCHE-1089362

PATIENT
  Age: 32 Year
  Sex: Male

DRUGS (1)
  1. ACTIVASE [Suspect]
     Indication: ACUTE MYOCARDIAL INFARCTION

REACTIONS (12)
  - SINUS HEADACHE [None]
  - VENTRICULAR FIBRILLATION [None]
  - RENAL FAILURE CHRONIC [None]
  - DEATH [None]
  - HYPOTENSION [None]
  - SYNCOPE [None]
  - VENTRICULAR TACHYCARDIA [None]
  - PULMONARY OEDEMA [None]
  - EXERCISE TOLERANCE DECREASED [None]
  - NAUSEA [None]
  - CARDIAC FAILURE CONGESTIVE [None]
  - VOMITING [None]
